FAERS Safety Report 6252729-0 (Version None)
Quarter: 2009Q3

REPORT INFORMATION
  Report Type: 
  Country: None (occurrence: None)
  Receive Date: 20090701
  Receipt Date: 20090625
  Transmission Date: 20100115
  Serious: Yes (Disabling)
  Sender: FDA-Public Use
  Company Number: AU-ASTRAZENECA-2008AP08416

PATIENT
  Age: 864 Month
  Sex: Female

DRUGS (2)
  1. ARIMIDEX [Suspect]
     Indication: BREAST CANCER
     Route: 048
     Dates: start: 20060421, end: 20081216
  2. TEMAZEPAM [Concomitant]

REACTIONS (3)
  - ARTHRALGIA [None]
  - ATROPHY [None]
  - MOVEMENT DISORDER [None]
